FAERS Safety Report 5204636-X (Version None)
Quarter: 2007Q1

REPORT INFORMATION
  Report Type: 
  Country: None (occurrence: None)
  Receive Date: 20070110
  Receipt Date: 20060602
  Transmission Date: 20070707
  Serious: No
  Sender: FDA-Public Use
  Company Number: US-BRISTOL-MYERS SQUIBB COMPANY-13399365

PATIENT
  Age: 45 Year
  Sex: Male
  Weight: 91 kg

DRUGS (3)
  1. ABILIFY [Suspect]
     Indication: BIPOLAR DISORDER
     Dosage: RECHALLENGED ON 01-JUN-2006 AT 5 MG
     Route: 048
     Dates: start: 20060101
  2. XANAX [Concomitant]
  3. DARVOCET [Concomitant]

REACTIONS (1)
  - HEADACHE [None]
